FAERS Safety Report 24768657 (Version 3)
Quarter: 2025Q3

REPORT INFORMATION
  Report Type: Report from Study
  Country: US (occurrence: US)
  Receive Date: 20241224
  Receipt Date: 20250802
  Transmission Date: 20251020
  Serious: Yes (Life-Threatening, Hospitalization, Other)
  Sender: ALEXION PHARMACEUTICALS
  Company Number: US-AstraZeneca-CH-00772653A

PATIENT
  Sex: Female

DRUGS (1)
  1. STRENSIQ [Suspect]
     Active Substance: ASFOTASE ALFA
     Indication: Hypophosphatasia
     Route: 065

REACTIONS (5)
  - Rib fracture [Unknown]
  - Dehydration [Unknown]
  - Confusional state [Unknown]
  - Pneumonia [Unknown]
  - Dysstasia [Unknown]

NARRATIVE: CASE EVENT DATE: 20241201
